FAERS Safety Report 6112135-6 (Version None)
Quarter: 2009Q1

REPORT INFORMATION
  Report Type: 
  Country: None (occurrence: None)
  Receive Date: 20090311
  Receipt Date: 20090227
  Transmission Date: 20090719
  Serious: Yes (Death)
  Sender: FDA-Public Use
  Company Number: RU-MERCK-0902RUS00002

PATIENT
  Age: 23 Year
  Sex: Male

DRUGS (3)
  1. CANCIDAS [Suspect]
     Indication: RENAL TRANSPLANT
     Route: 065
  2. CANCIDAS [Suspect]
     Route: 065
  3. PRIMAXIN [Concomitant]
     Indication: RENAL TRANSPLANT
     Route: 065

REACTIONS (1)
  - PULMONARY HAEMORRHAGE [None]
